FAERS Safety Report 6068250-9 (Version None)
Quarter: 2009Q1

REPORT INFORMATION
  Report Type: 
  Country: None (occurrence: None)
  Receive Date: 20090206
  Receipt Date: 20090126
  Transmission Date: 20090719
  Serious: Yes (Other)
  Sender: FDA-Public Use
  Company Number: PHHY2009GB03066

PATIENT
  Sex: Male

DRUGS (2)
  1. CLOZARIL [Suspect]
     Indication: SCHIZOPHRENIA
     Dosage: 400 MG DAILY
     Dates: start: 20050121
  2. CLOZARIL [Suspect]
     Dosage: 400 MG, BID

REACTIONS (2)
  - DRUG ADMINISTRATION ERROR [None]
  - DYSARTHRIA [None]
